FAERS Safety Report 14568421 (Version 1)
Quarter: 2018Q1

REPORT INFORMATION
  Report Type: Spontaneous
  Country: US (occurrence: US)
  Receive Date: 20180223
  Receipt Date: 20180223
  Transmission Date: 20180509
  Serious: No
  Sender: FDA-Public Use
  Company Number: US-EMD SERONO-E2B_90022025

PATIENT
  Sex: Female

DRUGS (1)
  1. REBIF [Suspect]
     Active Substance: INTERFERON BETA-1A
     Indication: PRODUCT USED FOR UNKNOWN INDICATION
     Route: 058
     Dates: start: 20170721, end: 201801

REACTIONS (7)
  - Injection site swelling [Unknown]
  - Hypoaesthesia [Unknown]
  - Injection site bruising [Unknown]
  - Ocular discomfort [Unknown]
  - Influenza [Unknown]
  - Headache [Unknown]
  - Pain [Unknown]
